FAERS Safety Report 6228287-3 (Version None)
Quarter: 2009Q2

REPORT INFORMATION
  Report Type: 
  Country: None (occurrence: None)
  Receive Date: 20090612
  Receipt Date: 20090608
  Transmission Date: 20091009
  Serious: Yes (Death)
  Sender: FDA-Public Use
  Company Number: PHHY2009MX21192

PATIENT
  Sex: Male

DRUGS (1)
  1. TEGRETOL [Suspect]
     Indication: EPILEPSY
     Dosage: 1 DF, TID
     Route: 048
     Dates: start: 19910101

REACTIONS (3)
  - ASPIRATION [None]
  - CARDIAC ARREST [None]
  - INTRACRANIAL ANEURYSM [None]
